FAERS Safety Report 6606597-5 (Version None)
Quarter: 2010Q1

REPORT INFORMATION
  Report Type: 
  Country: None (occurrence: None)
  Receive Date: 20100226
  Receipt Date: 20100208
  Transmission Date: 20100710
  Serious: Yes (Other)
  Sender: FDA-Public Use
  Company Number: PHHY2009GB57854

PATIENT
  Sex: Male

DRUGS (3)
  1. CLOZARIL [Suspect]
     Indication: SCHIZOPHRENIA
     Dosage: UNK
     Route: 048
     Dates: start: 20080826
  2. CLOZARIL [Suspect]
     Dosage: 200 MG AT NOON (INSTEAD OF MORNING) AND 375 MG NOCTE
  3. VALPROATE SODIUM [Concomitant]
     Dosage: 500 MG, QD

REACTIONS (6)
  - AREFLEXIA [None]
  - ARTHRALGIA [None]
  - BACK PAIN [None]
  - HYPOAESTHESIA [None]
  - PAIN IN EXTREMITY [None]
  - PARAESTHESIA [None]
